FAERS Safety Report 9220176 (Version 1)
Quarter: 2013Q1

REPORT INFORMATION
  Report Type: Spontaneous
  Country: US (occurrence: US)
  Receive Date: 20120830
  Receipt Date: 20120830
  Transmission Date: 20140127
  Serious: Yes (Other)
  Sender: FDA-Public Use
  Company Number: PHEH2011US00593

PATIENT
  Sex: Female

DRUGS (3)
  1. SANDOSTATIN LAR (OCTREOTIDE W/POLY (D L-LACTIDE-CO-GLYCOLIDE)) [Suspect]
  2. VITAMINS (ASCORBIC ACID, ERGOCALCIFEROL, NICOTINAMIDE, RETINOL, ROBOFLAVIN, THIAMINE HYDROCHLORIDE) [Concomitant]
  3. BOVINE LIVER TABLETS [Concomitant]

REACTIONS (1)
  - Metastases to liver [None]
